FAERS Safety Report 20004700 (Version 1)
Quarter: 2021Q4

REPORT INFORMATION
  Report Type: Spontaneous
  Country: US (occurrence: US)
  Receive Date: 20211027
  Receipt Date: 20211027
  Transmission Date: 20220303
  Serious: No
  Sender: FDA-Public Use
  Company Number: US-PERRIGO-20US015869

PATIENT
  Age: 85 Year
  Sex: Male
  Weight: 79.37 kg

DRUGS (6)
  1. CICLOPIROX [Suspect]
     Active Substance: CICLOPIROX
     Indication: Onychomycosis
     Dosage: 1 APPLICATION, QD
     Route: 061
     Dates: start: 201905, end: 201910
  2. CICLOPIROX [Suspect]
     Active Substance: CICLOPIROX
     Dosage: 1 APPLICATION, QD
     Route: 061
     Dates: start: 201910, end: 202004
  3. CICLOPIROX [Suspect]
     Active Substance: CICLOPIROX
     Dosage: 1 APPLICATION, QD
     Route: 061
     Dates: start: 202004
  4. VITAMINS NOS [Concomitant]
     Active Substance: VITAMINS
     Indication: Routine health maintenance
     Dosage: UNKNOWN, UNKNOWN
     Route: 065
     Dates: start: 1990
  5. BENZALKONIUM CHLORIDE\SODIUM CHLORIDE [Concomitant]
     Active Substance: BENZALKONIUM CHLORIDE\SODIUM CHLORIDE
     Indication: Supplementation therapy
     Dosage: UNKNOWN, UNKNOWN
     Route: 065
     Dates: start: 1990
  6. BIFIDOBACTERIUM ANIMALIS LACTIS [Concomitant]
     Active Substance: BIFIDOBACTERIUM ANIMALIS LACTIS
     Indication: Routine health maintenance
     Dosage: UNKNOWN, UNKNOWN
     Route: 065
     Dates: start: 1990

REACTIONS (3)
  - Drug ineffective [Unknown]
  - Wrong technique in product usage process [Recovered/Resolved]
  - Incorrect product administration duration [Not Recovered/Not Resolved]

NARRATIVE: CASE EVENT DATE: 20190501
